FAERS Safety Report 5012712-X (Version None)
Quarter: 2006Q2

REPORT INFORMATION
  Report Type: 
  Country: None (occurrence: None)
  Receive Date: 20060530
  Receipt Date: 20060418
  Transmission Date: 20061013
  Serious: Yes (Life-Threatening, Hospitalization)
  Sender: FDA-Public Use
  Company Number: PHNU2006DE01694

PATIENT
  Age: 79 Year
  Sex: Female
  Weight: 76.5 kg

DRUGS (6)
  1. BELOC ZOK [Suspect]
     Dosage: 23.8-0-47.5 MG
     Route: 048
     Dates: start: 20010101
  2. METFORMIN [Concomitant]
     Indication: DIABETES MELLITUS
     Dosage: 425-0-425MG/DAY
  3. STARLIX [Concomitant]
     Indication: DIABETES MELLITUS
  4. CO-DIOVAN [Suspect]
     Indication: HYPERTENSION
     Dosage: 1 DF, QD
     Route: 048
     Dates: start: 20030101
  5. NOVODIGAL [Suspect]
     Dosage: 0.1 UNK, UNK
     Route: 048
     Dates: start: 20040101
  6. FUROSEMIDE ^RATIOPHARM^ [Suspect]
     Dosage: UNK, ONCE/SINGLE
     Dates: start: 20060315, end: 20060315

REACTIONS (9)
  - BLOOD PRESSURE DECREASED [None]
  - CARDIAC FAILURE [None]
  - DRUG INTERACTION [None]
  - FALL [None]
  - HUMERUS FRACTURE [None]
  - OEDEMA PERIPHERAL [None]
  - PERIPHERAL VASCULAR DISORDER [None]
  - SYNCOPE [None]
  - TRAUMATIC HAEMATOMA [None]
